FAERS Safety Report 9869691 (Version 1)
Quarter: 2014Q1

REPORT INFORMATION
  Report Type: Spontaneous
  Country: US (occurrence: None)
  Receive Date: 20140203
  Receipt Date: 20140203
  Transmission Date: 20141002
  Serious: Yes (Hospitalization)
  Sender: FDA-Public Use
  Company Number: None

PATIENT
  Age: 20 Year
  Sex: Male
  Weight: 68 kg

DRUGS (2)
  1. MERCAPTOPURINE [Suspect]
  2. METHOTREXATE [Suspect]

REACTIONS (4)
  - Jaundice [None]
  - Back pain [None]
  - Cholestasis [None]
  - Liver injury [None]
